FAERS Safety Report 8209527-8 (Version None)
Quarter: 2012Q1

REPORT INFORMATION
  Report Type: 
  Country: None (occurrence: None)
  Receive Date: 20120227
  Receipt Date: 20111228
  Transmission Date: 20120608
  Serious: No
  Sender: FDA-Public Use
  Company Number: 342184

PATIENT
  Age: 75 Year
  Sex: Male

DRUGS (1)
  1. VICTOZA [Suspect]
     Indication: TYPE 2 DIABETES MELLITUS
     Dosage: UNKNOWN, SUBCUTANEOUS
     Route: 058

REACTIONS (3)
  - NAUSEA [None]
  - ERUCTATION [None]
  - FLATULENCE [None]
